FAERS Safety Report 4917354-X (Version None)
Quarter: 2006Q1

REPORT INFORMATION
  Report Type: 
  Country: None (occurrence: None)
  Receive Date: 20060221
  Receipt Date: 20050726
  Transmission Date: 20060701
  Serious: Yes (Hospitalization)
  Sender: FDA-Public Use
  Company Number: US-MERCK-0507USA04001

PATIENT
  Age: 70 Year
  Sex: Male
  Weight: 81 kg

DRUGS (4)
  1. VIOXX [Suspect]
     Indication: BACK PAIN
     Route: 048
     Dates: start: 20000101, end: 20040101
  2. VIOXX [Suspect]
     Route: 048
     Dates: start: 20000101, end: 20040101
  3. VIOXX [Suspect]
     Indication: SCIATICA
     Route: 048
     Dates: start: 20000101, end: 20040101
  4. VIOXX [Suspect]
     Route: 048
     Dates: start: 20000101, end: 20040101

REACTIONS (9)
  - ANGINA PECTORIS [None]
  - ANXIETY [None]
  - ARTERIOSCLEROSIS [None]
  - CHEST PAIN [None]
  - DYSPNOEA [None]
  - HYPOGLYCAEMIA [None]
  - RECTAL HAEMORRHAGE [None]
  - RHINITIS ALLERGIC [None]
  - UPPER RESPIRATORY TRACT CONGESTION [None]
